FAERS Safety Report 7358517-6 (Version None)
Quarter: 2011Q1

REPORT INFORMATION
  Report Type: 
  Country: None (occurrence: None)
  Receive Date: 20110317
  Receipt Date: 20110311
  Transmission Date: 20110831
  Serious: Yes (Life-Threatening, Hospitalization, Other)
  Sender: FDA-Public Use
  Company Number: US-PFIZER INC-2004080828

PATIENT
  Sex: Female

DRUGS (9)
  1. NEURONTIN [Suspect]
     Indication: PAIN
  2. NEURONTIN [Suspect]
     Indication: MOOD SWINGS
  3. DESYREL [Suspect]
     Indication: INSOMNIA
     Dosage: UNK
     Route: 048
  4. CELEXA [Suspect]
     Indication: DEPRESSION
     Dosage: UNK
  5. NEURONTIN [Suspect]
     Indication: DEPRESSION
     Dosage: 100 MG, 2X/DAY
     Route: 048
     Dates: start: 20010529
  6. KLONOPIN [Suspect]
     Indication: INSOMNIA
     Dosage: UNK
     Route: 048
  7. LORAZEPAM [Suspect]
     Dosage: UNK
  8. NEURONTIN [Suspect]
     Indication: BIPOLAR DISORDER
  9. CELEXA [Suspect]
     Indication: BIPOLAR DISORDER

REACTIONS (8)
  - INTENTIONAL OVERDOSE [None]
  - SUICIDE ATTEMPT [None]
  - INTENTIONAL SELF-INJURY [None]
  - IMPULSE-CONTROL DISORDER [None]
  - PERSONALITY DISORDER [None]
  - SUICIDAL BEHAVIOUR [None]
  - MAJOR DEPRESSION [None]
  - FEELING ABNORMAL [None]
